FAERS Safety Report 4868549-5 (Version None)
Quarter: 2005Q4

REPORT INFORMATION
  Report Type: 
  Country: None (occurrence: None)
  Receive Date: 20051223
  Receipt Date: 20051219
  Transmission Date: 20060501
  Serious: Yes (Other)
  Sender: FDA-Public Use
  Company Number: 2005BH003741

PATIENT
  Sex: Female

DRUGS (4)
  1. HEPARIN SODIUM [Suspect]
     Dosage: SEE IMAGE, IV
     Route: 042
     Dates: start: 20051216, end: 20051216
  2. HEPARIN SODIUM [Suspect]
  3. HEPARIN SODIUM [Suspect]
  4. NORMAL SALINE [Concomitant]

REACTIONS (3)
  - COAGULATION TIME SHORTENED [None]
  - COAGULOPATHY [None]
  - DRUG INEFFECTIVE [None]
